FAERS Safety Report 9619639 (Version 2)
Quarter: 2013Q4

REPORT INFORMATION
  Report Type: Report from Study
  Country: CA (occurrence: CA)
  Receive Date: 20131014
  Receipt Date: 20131014
  Transmission Date: 20140711
  Serious: Yes (Death)
  Sender: FDA-Public Use
  Company Number: PHHY2011CA96456

PATIENT
  Age: 58 Year
  Sex: Male

DRUGS (3)
  1. AFINITOR [Suspect]
     Indication: RECTAL CANCER
     Dosage: 10 MG EVERY DAY
     Route: 048
     Dates: start: 20110912
  2. SANDOSTATIN LAR [Suspect]
     Indication: RECTAL CANCER
     Dosage: 20 MG, EVERY 4 WEEKS
     Route: 030
     Dates: start: 20110908
  3. SANDOSTATIN LAR [Suspect]
     Dosage: 30 MG, EVERY 4 WEEKS
     Route: 030
     Dates: end: 20130823

REACTIONS (2)
  - Death [Fatal]
  - Oral pain [Unknown]
